FAERS Safety Report 8384621-X (Version None)
Quarter: 2012Q2

REPORT INFORMATION
  Report Type: 
  Country: None (occurrence: None)
  Receive Date: 20120524
  Receipt Date: 20120516
  Transmission Date: 20120825
  Serious: Yes (Other)
  Sender: FDA-Public Use
  Company Number: US-BAXTER-2012BAX000084

PATIENT
  Sex: Male
  Weight: 98.4 kg

DRUGS (1)
  1. GAMMAGARD LIQUID [Suspect]
     Dosage: 390 ML
     Route: 042
     Dates: start: 20110304, end: 20120119

REACTIONS (1)
  - HEPATITIS C ANTIBODY POSITIVE [None]
